FAERS Safety Report 5338755-4 (Version None)
Quarter: 2007Q2

REPORT INFORMATION
  Report Type: 
  Country: None (occurrence: None)
  Receive Date: 20070328
  Receipt Date: 20070105
  Transmission Date: 20071010
  Serious: Yes (Hospitalization)
  Sender: FDA-Public Use
  Company Number: 13633474

PATIENT
  Sex: Male
  Weight: 81.63 kg

DRUGS (4)
  1. EMSAM [Suspect]
     Dosage: 12 MILLIGRAM, 1 DAY TD
     Dates: start: 20061101
  2. GEODON [Concomitant]
  3. LAMICTAL [Concomitant]
  4. LITHIUM CARBONATE [Concomitant]

REACTIONS (2)
  - INSOMNIA [None]
  - SUICIDE ATTEMPT [None]
